FAERS Safety Report 7736875-8 (Version None)
Quarter: 2011Q3

REPORT INFORMATION
  Report Type: 
  Country: None (occurrence: None)
  Receive Date: 20110908
  Receipt Date: 20110902
  Transmission Date: 20111222
  Serious: Yes (Other)
  Sender: FDA-Public Use
  Company Number: US-PFIZER INC-2011205990

PATIENT
  Sex: Female
  Weight: 60.771 kg

DRUGS (1)
  1. XALATAN [Suspect]
     Indication: GLAUCOMA
     Dosage: 1 DROP EACH EYE DAILY
     Route: 047
     Dates: start: 20000101

REACTIONS (1)
  - INTRAOCULAR PRESSURE INCREASED [None]
